FAERS Safety Report 4739699-9 (Version None)
Quarter: 2005Q3

REPORT INFORMATION
  Report Type: 
  Country: None (occurrence: None)
  Receive Date: 20050810
  Receipt Date: 20050428
  Transmission Date: 20060218
  Serious: No
  Sender: FDA-Public Use
  Company Number: US-GLAXOSMITHKLINE-A0556191A

PATIENT
  Age: 12 Year
  Sex: Male

DRUGS (3)
  1. PAXIL [Suspect]
     Indication: OBSESSIVE-COMPULSIVE DISORDER
     Dosage: 20MG SEE DOSAGE TEXT
     Route: 048
  2. SEROQUEL [Concomitant]
  3. DEPAKOTE [Concomitant]

REACTIONS (1)
  - DRUG INEFFECTIVE [None]
